FAERS Safety Report 9222279 (Version 1)
Quarter: 2013Q1

REPORT INFORMATION
  Report Type: Spontaneous
  Country: US (occurrence: None)
  Receive Date: 20120910
  Receipt Date: 20120910
  Transmission Date: 20140127
  Serious: No
  Sender: FDA-Public Use
  Company Number: 1205USA05354

PATIENT
  Age: 78 Year
  Sex: Male

DRUGS (5)
  1. ZIOPTAN [Suspect]
     Indication: GLAUCOMA
     Route: 047
     Dates: start: 20120416, end: 20120426
  2. TIMOLOL (TIMOLOL) (NONE) [Concomitant]
  3. ASPIRIN (ASPIRIN) [Concomitant]
  4. MK-9278 (VITAMINS) TABLET [Concomitant]
  5. ALLEGRA [Concomitant]

REACTIONS (3)
  - Nausea [None]
  - Headache [None]
  - Vision blurred [None]
